FAERS Safety Report 6342226-6 (Version None)
Quarter: 2009Q3

REPORT INFORMATION
  Report Type: 
  Country: None (occurrence: None)
  Receive Date: 20090903
  Receipt Date: 20090903
  Transmission Date: 20100115
  Serious: Yes (Other)
  Sender: FDA-Public Use
  Company Number: None

PATIENT
  Age: 54 Year
  Sex: Female
  Weight: 106.1417 kg

DRUGS (1)
  1. NORVASC [Suspect]

REACTIONS (3)
  - PRODUCT SUBSTITUTION ISSUE [None]
  - PRURITUS [None]
  - SWELLING [None]
